FAERS Safety Report 6808283-5 (Version None)
Quarter: 2010Q2

REPORT INFORMATION
  Report Type: 
  Country: None (occurrence: None)
  Receive Date: 20100629
  Receipt Date: 20090628
  Transmission Date: 20101027
  Serious: No
  Sender: FDA-Public Use
  Company Number: US-PFIZER INC-2009180003

PATIENT
  Sex: Male

DRUGS (6)
  1. VIAGRA [Suspect]
     Dosage: UNK
  2. ALPRAZOLAM [Interacting]
     Dosage: UNK
  3. ROPINIROLE [Interacting]
     Dosage: UNK
  4. CRESTOR [Interacting]
     Dosage: UNK
  5. LISINOPRIL [Interacting]
     Dosage: UNK
  6. PANTOPRAZOLE [Interacting]
     Dosage: UNK

REACTIONS (4)
  - DECREASED APPETITE [None]
  - DRUG INEFFECTIVE [None]
  - DRUG INTERACTION [None]
  - HEADACHE [None]
